FAERS Safety Report 4913598-1 (Version None)
Quarter: 2006Q1

REPORT INFORMATION
  Report Type: 
  Country: None (occurrence: None)
  Receive Date: 20060214
  Receipt Date: 20060214
  Transmission Date: 20060701
  Serious: Yes (Hospitalization)
  Sender: FDA-Public Use
  Company Number: None

PATIENT
  Sex: Female

DRUGS (1)
  1. BACTRIM [Suspect]
     Indication: INFECTION
     Dosage: 1 TAB DAILY PO
     Route: 048
     Dates: start: 20051107, end: 20051108

REACTIONS (1)
  - HYPERKALAEMIA [None]
